FAERS Safety Report 6886052-8 (Version None)
Quarter: 2010Q3

REPORT INFORMATION
  Report Type: 
  Country: None (occurrence: None)
  Receive Date: 20100729
  Receipt Date: 20080408
  Transmission Date: 20110219
  Serious: No
  Sender: FDA-Public Use
  Company Number: US-PFIZER INC-2008027729

PATIENT
  Sex: Female

DRUGS (9)
  1. ACCUPRIL [Suspect]
     Indication: HYPERTENSION
  2. SYNTHROID [Concomitant]
  3. VITAMIN B [Concomitant]
  4. ASPIRINE [Concomitant]
  5. DOCUSATE [Concomitant]
     Dates: end: 20080326
  6. VYTORIN [Concomitant]
  7. CICLOPIROX [Concomitant]
  8. NAPROSYN [Concomitant]
  9. STARLIX [Concomitant]

REACTIONS (1)
  - COUGH [None]
